FAERS Safety Report 11558613 (Version 1)
Quarter: 2015Q3

REPORT INFORMATION
  Report Type: Spontaneous
  Country: US (occurrence: US)
  Receive Date: 20150928
  Receipt Date: 20150928
  Transmission Date: 20151125
  Serious: Yes (Other)
  Sender: FDA-Public Use
  Company Number: US-SUN PHARMACEUTICAL INDUSTRIES LTD-12SUNGE38P

PATIENT
  Age: 17 Year
  Sex: Female

DRUGS (1)
  1. GEMCITABINE [Suspect]
     Active Substance: GEMCITABINE\GEMCITABINE HYDROCHLORIDE
     Indication: LEIOMYOSARCOMA
     Dosage: DISCONTINUED AFTER 3 DOSES
     Route: 042

REACTIONS (4)
  - Refusal of treatment by patient [None]
  - Skin ulcer [Unknown]
  - Skin necrosis [None]
  - Neutropenia [Unknown]
